FAERS Safety Report 15779479 (Version 12)
Quarter: 2019Q3

REPORT INFORMATION
  Report Type: Report from Study
  Country: CA (occurrence: CA)
  Receive Date: 20190101
  Receipt Date: 20190906
  Transmission Date: 20191004
  Serious: Yes (Other)
  Sender: FDA-Public Use
  Company Number: CA-BRISTOL-MYERS SQUIBB COMPANY-BMS-2018-121823

PATIENT
  Age: 51 Year
  Sex: Female

DRUGS (2)
  1. NIVOLUMAB [Suspect]
     Active Substance: NIVOLUMAB
     Indication: MALIGNANT MELANOMA
     Dosage: 285 MILLIGRAM, Q2WK
     Route: 042
     Dates: start: 20181220
  2. NIVOLUMAB [Suspect]
     Active Substance: NIVOLUMAB
     Indication: PRODUCT USED FOR UNKNOWN INDICATION
     Dosage: 297 MILLIGRAM, Q2WK
     Route: 042
     Dates: start: 20181220

REACTIONS (17)
  - Somnolence [Unknown]
  - Papule [Unknown]
  - Dyspepsia [Not Recovered/Not Resolved]
  - Lymphadenopathy [Unknown]
  - Fatigue [Not Recovered/Not Resolved]
  - Emotional disorder [Not Recovered/Not Resolved]
  - Vulvovaginal pruritus [Recovered/Resolved]
  - Myalgia [Unknown]
  - Pruritus generalised [Unknown]
  - Genital rash [Unknown]
  - Rash [Not Recovered/Not Resolved]
  - Feeling hot [Not Recovered/Not Resolved]
  - Vaginal infection [Unknown]
  - Groin pain [Recovered/Resolved]
  - Malaise [Unknown]
  - Pruritus [Not Recovered/Not Resolved]
  - Depression [Unknown]

NARRATIVE: CASE EVENT DATE: 20181220
